FAERS Safety Report 6066604-8 (Version None)
Quarter: 2009Q1

REPORT INFORMATION
  Report Type: 
  Country: None (occurrence: None)
  Receive Date: 20090205
  Receipt Date: 20090128
  Transmission Date: 20090719
  Serious: Yes (Hospitalization)
  Sender: FDA-Public Use
  Company Number: B0556372A

PATIENT
  Age: 51 Year
  Sex: Male

DRUGS (2)
  1. COMBIVIR [Suspect]
     Indication: ANTIVIRAL PROPHYLAXIS
     Dosage: 1TAB TWICE PER DAY
     Route: 048
     Dates: start: 20080711
  2. KALETRA [Suspect]
     Indication: ANTIVIRAL PROPHYLAXIS
     Dosage: 2TAB TWICE PER DAY
     Route: 048
     Dates: start: 20080711

REACTIONS (5)
  - HYPERHIDROSIS [None]
  - JAUNDICE [None]
  - PYREXIA [None]
  - TRANSAMINASES INCREASED [None]
  - WEIGHT DECREASED [None]
